FAERS Safety Report 8900477 (Version 1)
Quarter: 2012Q4

REPORT INFORMATION
  Report Type: 
  Country: CH (occurrence: CH)
  Receive Date: 20121109
  Receipt Date: 20121109
  Transmission Date: 20130627
  Serious: Yes (Hospitalization)
  Sender: FDA-Public Use
  Company Number: PHHY2012CH102485

PATIENT
  Age: 28 Year
  Sex: Male

DRUGS (3)
  1. FOCALIN XR [Suspect]
  2. RITALIN [Suspect]
     Dosage: 10 mg, TID
  3. FLUXETIN [Concomitant]

REACTIONS (1)
  - Gastrointestinal haemorrhage [Unknown]
